FAERS Safety Report 5955820-9 (Version None)
Quarter: 2008Q4

REPORT INFORMATION
  Report Type: 
  Country: None (occurrence: None)
  Receive Date: 20081117
  Receipt Date: 20081105
  Transmission Date: 20090506
  Serious: Yes (Other)
  Sender: FDA-Public Use
  Company Number: JP-PFIZER INC-2008087196

PATIENT
  Age: 74 Year
  Sex: Male
  Weight: 39 kg

DRUGS (4)
  1. VFEND [Suspect]
     Indication: BRONCHOPULMONARY ASPERGILLOSIS
     Dosage: DAILY DOSE:1200MG
     Route: 048
     Dates: start: 20080718, end: 20080718
  2. VFEND [Suspect]
     Dosage: DAILY DOSE:800MG
     Route: 048
     Dates: start: 20080719
  3. VFEND [Suspect]
     Dosage: DAILY DOSE:400MG
     Route: 048
     Dates: start: 20080728, end: 20080731
  4. RESPLEN [Suspect]
     Indication: COUGH
     Dosage: DAILY DOSE:60MG
     Dates: start: 20080719, end: 20080731

REACTIONS (1)
  - HYPONATRAEMIA [None]
